FAERS Safety Report 4622242-2 (Version None)
Quarter: 2005Q1

REPORT INFORMATION
  Report Type: 
  Country: None (occurrence: None)
  Receive Date: 20050323
  Receipt Date: 20050323
  Transmission Date: 20050727
  Serious: Yes (Other)
  Sender: FDA-Public Use
  Company Number: None

PATIENT
  Age: 57 Year
  Sex: Male
  Weight: 99.7913 kg

DRUGS (3)
  1. MOBIC [Suspect]
     Indication: INFLAMMATION
     Dosage: 1 TAB TOTAL
  2. MOBIC [Suspect]
     Indication: SWELLING
     Dosage: 1 TAB TOTAL
  3. IBUPROFEN [Concomitant]

REACTIONS (4)
  - BLOOD PRESSURE INCREASED [None]
  - ERYTHEMA [None]
  - FEELING ABNORMAL [None]
  - FLUSHING [None]
